FAERS Safety Report 13662695 (Version 1)
Quarter: 2017Q2

REPORT INFORMATION
  Report Type: Spontaneous
  Country: US (occurrence: US)
  Receive Date: 20170616
  Receipt Date: 20170616
  Transmission Date: 20170830
  Serious: No
  Sender: FDA-Public Use
  Company Number: None

PATIENT
  Sex: Female

DRUGS (1)
  1. METOCLOPRAMIDE HYDROCHLORIDE. [Suspect]
     Active Substance: METOCLOPRAMIDE HYDROCHLORIDE
     Dosage: ?          QUANTITY:THING?.I N IT .\.;?

REACTIONS (4)
  - Extrapyramidal disorder [None]
  - Staring [None]
  - Musculoskeletal stiffness [None]
  - Movement disorder [None]

NARRATIVE: CASE EVENT DATE: 20160424
